FAERS Safety Report 6358367-3 (Version None)
Quarter: 2009Q3

REPORT INFORMATION
  Report Type: 
  Country: None (occurrence: None)
  Receive Date: 20090916
  Receipt Date: 20090905
  Transmission Date: 20100115
  Serious: Yes (Other)
  Sender: FDA-Public Use
  Company Number: US-PFIZER INC-2009268000

PATIENT
  Sex: Male

DRUGS (1)
  1. VIAGRA [Suspect]

REACTIONS (4)
  - ERECTION INCREASED [None]
  - EYE HAEMORRHAGE [None]
  - HAEMATEMESIS [None]
  - INTENTIONAL DRUG MISUSE [None]
